FAERS Safety Report 9538101 (Version 2)
Quarter: 2014Q3

REPORT INFORMATION
  Report Type: Report from Study
  Country: US (occurrence: US)
  Receive Date: 20130920
  Receipt Date: 20140825
  Transmission Date: 20150326
  Serious: Yes (Hospitalization)
  Sender: FDA-Public Use
  Company Number: US-BIOGENIDEC-2013BI088750

PATIENT
  Age: 36 Year
  Sex: Female

DRUGS (8)
  1. AVONEX [Suspect]
     Active Substance: INTERFERON BETA-1A
     Indication: MULTIPLE SCLEROSIS
     Route: 030
     Dates: start: 20130403, end: 2013
  2. NORCO [Concomitant]
     Active Substance: ACETAMINOPHEN\HYDROCODONE BITARTRATE
     Dates: end: 20140812
  3. SENOKOT [Concomitant]
     Active Substance: SENNOSIDES
     Dates: end: 20140812
  4. VITAMIN D [Concomitant]
     Active Substance: CHOLECALCIFEROL
  5. COPAXONE [Concomitant]
     Active Substance: GLATIRAMER ACETATE
     Dates: start: 2013, end: 20140729
  6. KLONOPIN [Concomitant]
     Active Substance: CLONAZEPAM
  7. AVONEX [Suspect]
     Active Substance: INTERFERON BETA-1A
     Indication: MULTIPLE SCLEROSIS
     Route: 030
     Dates: start: 20110916, end: 20130402
  8. CIPRO [Concomitant]
     Active Substance: CIPROFLOXACIN HYDROCHLORIDE
     Dates: end: 20140819

REACTIONS (3)
  - Appendicectomy [Recovered/Resolved]
  - Ligament rupture [Unknown]
  - Influenza like illness [Unknown]

NARRATIVE: CASE EVENT DATE: 201209
